FAERS Safety Report 7156379-3 (Version None)
Quarter: 2010Q4

REPORT INFORMATION
  Report Type: 
  Country: None (occurrence: None)
  Receive Date: 20101130
  Receipt Date: 20101022
  Transmission Date: 20110411
  Serious: Yes (Hospitalization)
  Sender: FDA-Public Use
  Company Number: 54973

PATIENT
  Age: 1 Year
  Sex: Male
  Weight: 10.4327 kg

DRUGS (1)
  1. HYLAND'S TEETHING TABLETS [Suspect]
     Indication: TEETHING
     Dosage: 4 TABLETS ONCE

REACTIONS (2)
  - CONVULSION [None]
  - VIRAL INFECTION [None]
